FAERS Safety Report 5502257-2 (Version None)
Quarter: 2007Q4

REPORT INFORMATION
  Report Type: 
  Country: None (occurrence: None)
  Receive Date: 20071026
  Receipt Date: 20071015
  Transmission Date: 20080405
  Serious: Yes (Hospitalization)
  Sender: FDA-Public Use
  Company Number: 17383

PATIENT
  Age: 59 Year
  Sex: Female

DRUGS (1)
  1. PACLITAXEL [Suspect]
     Indication: OVARIAN CANCER
     Dosage: 275 MG IV
     Route: 042
     Dates: start: 20070713, end: 20070713

REACTIONS (3)
  - BACK PAIN [None]
  - BURNING SENSATION [None]
  - DYSPNOEA [None]
